FAERS Safety Report 8367991-8 (Version None)
Quarter: 2012Q2

REPORT INFORMATION
  Report Type: 
  Country: None (occurrence: None)
  Receive Date: 20120516
  Receipt Date: 20120430
  Transmission Date: 20120825
  Serious: Yes (Hospitalization, Other)
  Sender: FDA-Public Use
  Company Number: CIP11002917

PATIENT
  Age: 75 Year
  Sex: Female

DRUGS (29)
  1. SYNTHROID [Concomitant]
  2. BETAMETHASONE [Concomitant]
  3. PREDNISONE TAB [Concomitant]
  4. CEPHALEXIN [Concomitant]
  5. CALCIUM CARBONATE [Concomitant]
  6. VITAMIN D (COLECALCIFEROL) [Concomitant]
  7. ZETIA [Concomitant]
  8. PROMETHAZINE W/CODEINE (CODEINE PHOSPHATE, PROMETHAZINE HYDROCHLORIDE) [Concomitant]
  9. DIFLORASONE (DIFLORASONE) [Concomitant]
  10. SULFAMETHOXAZOLE AND TRIMETHOPRIM [Concomitant]
  11. PRAVACHOL [Concomitant]
  12. CRESTOR [Concomitant]
  13. CLOTRIMAZOLE W/BETAMETHASONE DIPROPIONAT (BETAMETHASONE DIPROPIONATE, [Concomitant]
  14. ECONAZOLE (ECONAZOLE) [Concomitant]
  15. MULTIVITAMIN (ASCORBIC ACID, CALCIUM PANTOTHENATE, ERGOCALCIFEROL, NIC [Concomitant]
  16. ACTONEL [Suspect]
     Dosage: 150 MG ONCE MONTHLY, ORAL 35 MG ONCE WEEKLY, ORAL
     Route: 048
     Dates: start: 20081201
  17. ACTONEL [Suspect]
     Dosage: 150 MG ONCE MONTHLY, ORAL 35 MG ONCE WEEKLY, ORAL
     Route: 048
     Dates: start: 20100401
  18. AVELOX [Concomitant]
  19. VALTREX [Concomitant]
  20. AMOXICILLIN [Concomitant]
  21. ACTONEL [Suspect]
     Dosage: 35 MG ONCE WEEKLY, ORAL
     Route: 048
     Dates: start: 20030101, end: 20080101
  22. MIACALCIN [Concomitant]
  23. COENZYME Q10 [Concomitant]
  24. OMACOR (DOCOSAHEXAENOIC ACID, EICOSAPENTAENOIC ACID) [Concomitant]
  25. FOSAMAX [Suspect]
     Indication: OSTEOPOROSIS
     Dosage: 10 MG DAILY, ORAL 70 MG, ORAL
     Route: 048
     Dates: start: 20010401, end: 20030101
  26. FOSAMAX [Suspect]
     Indication: OSTEOPOROSIS
     Dosage: 10 MG DAILY, ORAL 70 MG, ORAL
     Route: 048
     Dates: start: 19990901, end: 20010301
  27. NIASPAN [Concomitant]
  28. LOVAZA [Concomitant]
  29. HYDROCHLOROTHIAZIDE [Concomitant]

REACTIONS (11)
  - LOW TURNOVER OSTEOPATHY [None]
  - IMPAIRED HEALING [None]
  - PAIN IN EXTREMITY [None]
  - BONE DISORDER [None]
  - STRESS FRACTURE [None]
  - FALL [None]
  - ASTHENIA [None]
  - BONE MARROW OEDEMA [None]
  - FEMUR FRACTURE [None]
  - FRACTURE DISPLACEMENT [None]
  - OEDEMA PERIPHERAL [None]
